FAERS Safety Report 24834768 (Version 5)
Quarter: 2025Q3

REPORT INFORMATION
  Report Type: Spontaneous
  Country: US (occurrence: US)
  Receive Date: 20250113
  Receipt Date: 20250915
  Transmission Date: 20251020
  Serious: No
  Sender: SANOFI AVENTIS
  Company Number: US-SA-2025SA009567

PATIENT
  Age: 36 Year
  Sex: Female

DRUGS (2)
  1. DUPIXENT [Suspect]
     Active Substance: DUPILUMAB
     Indication: Eczema
     Route: 058
     Dates: start: 202410, end: 202410
  2. DUPIXENT [Suspect]
     Active Substance: DUPILUMAB
     Indication: Dermatitis atopic
     Dosage: 300 MG, QOW
     Route: 058
     Dates: start: 2024

REACTIONS (11)
  - Middle insomnia [Unknown]
  - Scratch [Unknown]
  - Mental status changes [Unknown]
  - Pain [Unknown]
  - Joint swelling [Unknown]
  - Joint stiffness [Unknown]
  - Myalgia [Unknown]
  - Skin exfoliation [Unknown]
  - Dry eye [Not Recovered/Not Resolved]
  - Eye pruritus [Unknown]
  - Arthralgia [Unknown]

NARRATIVE: CASE EVENT DATE: 20241001
